FAERS Safety Report 20422011 (Version 2)
Quarter: 2022Q1

REPORT INFORMATION
  Report Type: Report from Study
  Country: CH (occurrence: None)
  Receive Date: 20220203
  Receipt Date: 20220215
  Transmission Date: 20220424
  Serious: Yes (Hospitalization)
  Sender: FDA-Public Use
  Company Number: CH-Merck Healthcare KGaA-9288210

PATIENT
  Age: 58 Year
  Sex: Male

DRUGS (8)
  1. AVELUMAB [Suspect]
     Active Substance: AVELUMAB
     Indication: Lung cancer metastatic
     Route: 042
     Dates: start: 20211203, end: 20220117
  2. IMIFOPLATIN [Suspect]
     Active Substance: IMIFOPLATIN
     Indication: Lung cancer metastatic
     Route: 042
     Dates: start: 20211203, end: 20220117
  3. OLMESARTAN [Concomitant]
     Active Substance: OLMESARTAN
     Indication: Product used for unknown indication
  4. AMLODIPINE [Concomitant]
     Active Substance: AMLODIPINE BESYLATE
     Indication: Product used for unknown indication
  5. ATORVASTATIN [Concomitant]
     Active Substance: ATORVASTATIN
     Indication: Product used for unknown indication
  6. PALLADONE [Concomitant]
     Active Substance: HYDROMORPHONE HYDROCHLORIDE
     Indication: Product used for unknown indication
     Dates: start: 20211027
  7. PALLADONE [Concomitant]
     Active Substance: HYDROMORPHONE HYDROCHLORIDE
     Indication: Product used for unknown indication
     Dates: start: 20211027
  8. ESOMEPRAZOLE MAGNESIUM [Concomitant]
     Active Substance: ESOMEPRAZOLE MAGNESIUM
     Indication: Product used for unknown indication

REACTIONS (2)
  - Pneumatosis intestinalis [Not Recovered/Not Resolved]
  - Arthralgia [Not Recovered/Not Resolved]

NARRATIVE: CASE EVENT DATE: 20211209
